FAERS Safety Report 4929064-3 (Version None)
Quarter: 2006Q1

REPORT INFORMATION
  Report Type: 
  Country: None (occurrence: None)
  Receive Date: 20060130
  Receipt Date: 20051130
  Transmission Date: 20060701
  Serious: Yes (Death, Life-Threatening)
  Sender: FDA-Public Use
  Company Number: RB-2419-2005

PATIENT
  Age: 33 Year
  Sex: Male
  Weight: 77.1115 kg

DRUGS (1)
  1. SUBOXONE [Suspect]
     Indication: DRUG DEPENDENCE

REACTIONS (1)
  - DEATH [None]
